FAERS Safety Report 8947212 (Version 2)
Quarter: 2014Q3

REPORT INFORMATION
  Report Type: Report from Study
  Country: US (occurrence: US)
  Receive Date: 20121205
  Receipt Date: 20140822
  Transmission Date: 20150326
  Serious: Yes (Other)
  Sender: FDA-Public Use
  Company Number: US-BAYER-200923409NA

PATIENT
  Age: 27 Year
  Sex: Female

DRUGS (2)
  1. BETASERON [Suspect]
     Active Substance: INTERFERON BETA-1B
     Indication: MULTIPLE SCLEROSIS
     Dosage: 8 MIU, QOD
     Route: 058
     Dates: start: 20090202
  2. BETASERON [Suspect]
     Active Substance: INTERFERON BETA-1B
     Indication: MULTIPLE SCLEROSIS
     Dosage: 8 MIU, BIW
     Route: 058
     Dates: end: 20140714

REACTIONS (20)
  - Multiple sclerosis relapse [Recovered/Resolved]
  - Dermatitis contact [Recovering/Resolving]
  - Injection site pain [None]
  - Influenza [Recovering/Resolving]
  - Panic attack [Recovering/Resolving]
  - Food allergy [Not Recovered/Not Resolved]
  - Injection site pruritus [None]
  - Injection site rash [Not Recovered/Not Resolved]
  - Anxiety [Recovering/Resolving]
  - Injection site mass [Not Recovered/Not Resolved]
  - Off label use [Recovered/Resolved]
  - Gastric ulcer [Not Recovered/Not Resolved]
  - Injection site erythema [None]
  - Blindness unilateral [Not Recovered/Not Resolved]
  - Depression [Recovering/Resolving]
  - Self-injurious ideation [Recovering/Resolving]
  - Exposure to toxic agent [Recovering/Resolving]
  - Injection site paraesthesia [Not Recovered/Not Resolved]
  - Rash [Recovering/Resolving]
  - Allergy to plants [Not Recovered/Not Resolved]

NARRATIVE: CASE EVENT DATE: 20090202
